FAERS Safety Report 8144932-X (Version None)
Quarter: 2012Q1

REPORT INFORMATION
  Report Type: 
  Country: None (occurrence: None)
  Receive Date: 20120217
  Receipt Date: 20120213
  Transmission Date: 20120608
  Serious: Yes (Hospitalization, Disabling, Other)
  Sender: FDA-Public Use
  Company Number: US-MERCK-1103USA00931

PATIENT
  Sex: Female

DRUGS (3)
  1. ALENDRONATE SODIUM [Suspect]
     Indication: OSTEOPOROSIS
     Route: 048
     Dates: start: 20080101
  2. FOSAMAX [Suspect]
     Route: 048
  3. FOSAMAX [Suspect]
     Indication: OSTEOPOROSIS
     Route: 048

REACTIONS (3)
  - LOW TURNOVER OSTEOPATHY [None]
  - FRACTURE [None]
  - FEMUR FRACTURE [None]
